FAERS Safety Report 12516764 (Version 1)
Quarter: 2016Q2

REPORT INFORMATION
  Report Type: Spontaneous
  Country: MT (occurrence: MT)
  Receive Date: 20160630
  Receipt Date: 20160630
  Transmission Date: 20160815
  Serious: Yes (Other)
  Sender: FDA-Public Use
  Company Number: MT-BAUSCH-BL-2016-015204

PATIENT
  Age: 35 Year
  Sex: Female

DRUGS (2)
  1. PREDNISOLONE. [Suspect]
     Active Substance: PREDNISOLONE
     Indication: IMMUNOSUPPRESSION
     Route: 065
  2. CICLOSPORIN [Suspect]
     Active Substance: CYCLOSPORINE
     Indication: IMMUNOSUPPRESSION
     Dosage: LEVELS MAINTAINED BETWEEN 75 AND 150
     Route: 065

REACTIONS (2)
  - Renal cancer [Recovered/Resolved]
  - Urinary tract infection [Unknown]
